FAERS Safety Report 8325340-5 (Version None)
Quarter: 2012Q2

REPORT INFORMATION
  Report Type: 
  Country: None (occurrence: None)
  Receive Date: 20120501
  Receipt Date: 20120424
  Transmission Date: 20120825
  Serious: Yes (Death)
  Sender: FDA-Public Use
  Company Number: GB-JNJFOC-20120412849

PATIENT

DRUGS (13)
  1. VINCRISTINE [Suspect]
     Indication: DIFFUSE LARGE B-CELL LYMPHOMA
     Route: 040
  2. PREDNISOLONE [Suspect]
     Indication: BURKITT'S LYMPHOMA
     Route: 040
  3. DOXORUBICIN HCL [Suspect]
     Indication: DIFFUSE LARGE B-CELL LYMPHOMA
     Route: 042
  4. CYCLOPHOSPHAMIDE [Suspect]
     Indication: BURKITT'S LYMPHOMA
     Route: 040
  5. CYCLOPHOSPHAMIDE [Suspect]
     Indication: DIFFUSE LARGE B-CELL LYMPHOMA
     Route: 040
  6. ANTHRACYCLINE [Suspect]
     Indication: BURKITT'S LYMPHOMA
     Dosage: CYCLE 1
     Route: 065
  7. PREDNISOLONE [Suspect]
     Indication: DIFFUSE LARGE B-CELL LYMPHOMA
     Route: 040
  8. VINCRISTINE [Suspect]
     Indication: BURKITT'S LYMPHOMA
     Route: 040
  9. RITUXIMAB [Suspect]
     Indication: BURKITT'S LYMPHOMA
     Route: 040
  10. RITUXIMAB [Suspect]
     Indication: DIFFUSE LARGE B-CELL LYMPHOMA
     Route: 040
  11. DOXORUBICIN HCL [Suspect]
     Indication: BURKITT'S LYMPHOMA
     Route: 042
  12. ANTHRACYCLINE [Suspect]
     Indication: DIFFUSE LARGE B-CELL LYMPHOMA
     Dosage: CYCLE 1
     Route: 065
  13. STEROIDS NOS [Concomitant]
     Indication: PREMEDICATION
     Route: 040

REACTIONS (2)
  - CARDIAC FAILURE [None]
  - NEUTROPENIA [None]
